FAERS Safety Report 16103262 (Version 1)
Quarter: 2019Q1

REPORT INFORMATION
  Report Type: Spontaneous
  Country: US (occurrence: US)
  Receive Date: 20190322
  Receipt Date: 20190322
  Transmission Date: 20190418
  Serious: Yes (Hospitalization, Other)
  Sender: FDA-Public Use
  Company Number: US-ASTELLAS-2019US011347

PATIENT
  Sex: Male
  Weight: 58.97 kg

DRUGS (1)
  1. ISAVUCONAZOLE [Suspect]
     Active Substance: ISAVUCONAZOLE
     Indication: PRODUCT USED FOR UNKNOWN INDICATION
     Dosage: UNK UNK, UNKNOWN FREQ.
     Route: 065

REACTIONS (6)
  - Chronic obstructive pulmonary disease [Unknown]
  - Pharyngeal oedema [Unknown]
  - Eating disorder [Unknown]
  - Mouth swelling [Unknown]
  - Drug effect incomplete [Unknown]
  - Lung infection [Unknown]
